FAERS Safety Report 7787323-3 (Version None)
Quarter: 2011Q3

REPORT INFORMATION
  Report Type: 
  Country: None (occurrence: None)
  Receive Date: 20110927
  Receipt Date: 20110912
  Transmission Date: 20111222
  Serious: Yes (Hospitalization, Other)
  Sender: FDA-Public Use
  Company Number: JPI-P-013988

PATIENT
  Age: 43 Year
  Sex: Female
  Weight: 92.9874 kg

DRUGS (39)
  1. ONDANSETRON [Concomitant]
  2. ASPIRIN [Concomitant]
  3. LUBIPROSTONE [Concomitant]
  4. FLUOXETINE [Concomitant]
  5. ENOXAPARIN SODIUM [Suspect]
     Indication: THROMBOSIS IN DEVICE
     Dates: start: 20110301, end: 20110401
  6. UNSPECIFIED ANTIBIOTICS [Suspect]
     Indication: ABSCESS
  7. AMPHETAMINE DEXTROAMPETAMINE MIXED SALTS [Concomitant]
  8. HYDROXYZINE [Concomitant]
  9. ZONISAMIDE [Concomitant]
  10. SYNTHROID [Concomitant]
  11. VITAMIN D [Concomitant]
  12. SIMVASTATIN [Concomitant]
  13. WARFARIN SODIUM [Suspect]
     Indication: THROMBOSIS IN DEVICE
     Dates: start: 20110301, end: 20110401
  14. HYOSCYAMINE [Concomitant]
  15. CALCIUM CARBONATE [Concomitant]
  16. CALCIUM AND VITAMIN D [Concomitant]
  17. TRAZODONE HYDROCHLORIDE [Concomitant]
  18. AMPHETAMINE SALT [Concomitant]
  19. DESVENLAFAXINE [Concomitant]
  20. ROPINIROLE HYDROCHLORIDE [Concomitant]
  21. GLUCOSAMINE AND CHONDROITIN [Concomitant]
  22. XYREM [Suspect]
     Indication: ABNORMAL SLEEP-RELATED EVENT
     Dosage: 2;4;6;3;7;3.5  GM (1 GM, 2 IN 1 D), ORAL
     Route: 048
     Dates: start: 20100901, end: 20100101
  23. XYREM [Suspect]
     Indication: SOMNAMBULISM
     Dosage: 2;4;6;3;7;3.5  GM (1 GM, 2 IN 1 D), ORAL
     Route: 048
     Dates: start: 20100901, end: 20100101
  24. XYREM [Suspect]
     Indication: CATAPLEXY
     Dosage: 2;4;6;3;7;3.5  GM (1 GM, 2 IN 1 D), ORAL
     Route: 048
     Dates: start: 20100901, end: 20100101
  25. XYREM [Suspect]
     Indication: ABNORMAL SLEEP-RELATED EVENT
     Dosage: 2;4;6;3;7;3.5  GM (1 GM, 2 IN 1 D), ORAL
     Route: 048
     Dates: start: 20100101, end: 20101205
  26. XYREM [Suspect]
     Indication: SOMNAMBULISM
     Dosage: 2;4;6;3;7;3.5  GM (1 GM, 2 IN 1 D), ORAL
     Route: 048
     Dates: start: 20100101, end: 20101205
  27. XYREM [Suspect]
     Indication: CATAPLEXY
     Dosage: 2;4;6;3;7;3.5  GM (1 GM, 2 IN 1 D), ORAL
     Route: 048
     Dates: start: 20100101, end: 20101205
  28. XYREM [Suspect]
     Indication: ABNORMAL SLEEP-RELATED EVENT
     Dosage: 2;4;6;3;7;3.5  GM (1 GM, 2 IN 1 D), ORAL
     Route: 048
     Dates: start: 20101206
  29. XYREM [Suspect]
     Indication: SOMNAMBULISM
     Dosage: 2;4;6;3;7;3.5  GM (1 GM, 2 IN 1 D), ORAL
     Route: 048
     Dates: start: 20101206
  30. XYREM [Suspect]
     Indication: CATAPLEXY
     Dosage: 2;4;6;3;7;3.5  GM (1 GM, 2 IN 1 D), ORAL
     Route: 048
     Dates: start: 20101206
  31. XYREM [Suspect]
     Indication: ABNORMAL SLEEP-RELATED EVENT
     Dosage: 2;4;6;3;7;3.5  GM (1 GM, 2 IN 1 D), ORAL
     Route: 048
     Dates: start: 20100909, end: 20100901
  32. XYREM [Suspect]
     Indication: SOMNAMBULISM
     Dosage: 2;4;6;3;7;3.5  GM (1 GM, 2 IN 1 D), ORAL
     Route: 048
     Dates: start: 20100909, end: 20100901
  33. XYREM [Suspect]
     Indication: CATAPLEXY
     Dosage: 2;4;6;3;7;3.5  GM (1 GM, 2 IN 1 D), ORAL
     Route: 048
     Dates: start: 20100909, end: 20100901
  34. OXYCODONE AND ACETAMINOPHEN [Concomitant]
  35. DULOXETIME HYDROCHLORIDE [Concomitant]
  36. LORATADINE [Concomitant]
  37. CLONAZEPAM [Concomitant]
  38. LORAZEPAM [Concomitant]
  39. LOVAZA [Concomitant]

REACTIONS (26)
  - BLOOD IMMUNOGLOBULIN G DECREASED [None]
  - EAR INFECTION FUNGAL [None]
  - HAEMATOMA [None]
  - GASTROENTERITIS CLOSTRIDIAL [None]
  - ERYTHEMA [None]
  - OEDEMA PERIPHERAL [None]
  - OTITIS EXTERNA [None]
  - NAUSEA [None]
  - DEPRESSION [None]
  - NASAL SEPTUM ULCERATION [None]
  - ABSCESS LIMB [None]
  - VULVOVAGINAL MYCOTIC INFECTION [None]
  - HAEMORRHOIDS [None]
  - PAIN IN EXTREMITY [None]
  - STAPHYLOCOCCAL SKIN INFECTION [None]
  - DIZZINESS [None]
  - EAR DISORDER [None]
  - CONDITION AGGRAVATED [None]
  - DRUG INEFFECTIVE [None]
  - DRUG ABUSE [None]
  - HALLUCINATION [None]
  - HAEMORRHAGE [None]
  - PRIMARY IMMUNODEFICIENCY SYNDROME [None]
  - DEHYDRATION [None]
  - THROMBOSIS IN DEVICE [None]
  - ABSCESS [None]
